FAERS Safety Report 7796973-X (Version None)
Quarter: 2011Q4

REPORT INFORMATION
  Report Type: 
  Country: None (occurrence: None)
  Receive Date: 20111005
  Receipt Date: 20111005
  Transmission Date: 20120403
  Serious: Yes (Other)
  Sender: FDA-Public Use
  Company Number: None

PATIENT
  Sex: Male

DRUGS (1)
  1. PROLIXIN [Suspect]
     Route: 048
     Dates: start: 20110921, end: 20111004

REACTIONS (11)
  - OROPHARYNGEAL PAIN [None]
  - ARTHRALGIA [None]
  - BREAST ENLARGEMENT [None]
  - BODY TEMPERATURE DECREASED [None]
  - DEHYDRATION [None]
  - ABNORMAL DREAMS [None]
  - DRY MOUTH [None]
  - POLLAKIURIA [None]
  - CONSTIPATION [None]
  - HEADACHE [None]
  - FEELING COLD [None]
